FAERS Safety Report 24946638 (Version 2)
Quarter: 2025Q1

REPORT INFORMATION
  Report Type: Report from Study
  Country: BR (occurrence: BR)
  Receive Date: 20250210
  Receipt Date: 20250326
  Transmission Date: 20250408
  Serious: Yes (Other)
  Sender: NOVO NORDISK
  Company Number: BR-NOVOPROD-1362831

PATIENT
  Age: 828 Month
  Sex: Female

DRUGS (2)
  1. FIASP [Suspect]
     Active Substance: INSULIN ASPART
     Dosage: 5 IU, QD
  2. FIASP [Suspect]
     Active Substance: INSULIN ASPART
     Indication: Type 1 diabetes mellitus
     Dosage: 8 IU, QD(2 IU IN THE MORNING, 4 IU AT LUNCH AND 2 IU AT DINNER)

REACTIONS (5)
  - Blood glucose increased [Unknown]
  - Device issue [Unknown]
  - Device leakage [Unknown]
  - Device failure [Unknown]
  - Wrong technique in product usage process [Unknown]

NARRATIVE: CASE EVENT DATE: 20250128
